FAERS Safety Report 9256843 (Version 1)
Quarter: 2013Q2

REPORT INFORMATION
  Report Type: Spontaneous
  Country: US (occurrence: US)
  Receive Date: 20130426
  Receipt Date: 20130426
  Transmission Date: 20140414
  Serious: No
  Sender: FDA-Public Use
  Company Number: US-ASTRAZENECA-2013SE23744

PATIENT
  Age: 55 Year
  Sex: Male
  Weight: 181.4 kg

DRUGS (6)
  1. SYMBICORT [Suspect]
     Indication: ASTHMA
     Dosage: 80/4.5 TWO PUFFS, BID
     Route: 055
     Dates: start: 201203, end: 201209
  2. SYMBICORT [Suspect]
     Indication: ASTHMA
     Dosage: 80/4.5 TWO PUFFS, BID
     Route: 055
     Dates: start: 201210, end: 20130404
  3. SYMBICORT [Suspect]
     Indication: ASTHMA
     Dosage: 160/4.5 TWO PUFFS, BID
     Route: 055
     Dates: start: 20130404
  4. BLOOD PRESSURE MEDICATION [Suspect]
     Indication: HYPERTENSION
     Dosage: DAILY
     Route: 048
     Dates: start: 20130328
  5. BLOOD PRESSURE MEDICATION [Suspect]
     Indication: HYPERTENSION
     Dosage: DAILY
     Route: 048
  6. IBUPROFEN [Concomitant]
     Indication: PAIN
     Route: 048

REACTIONS (10)
  - Dyspnoea [Recovered/Resolved]
  - Increased bronchial secretion [Recovered/Resolved]
  - Feeling abnormal [Recovered/Resolved]
  - Pain [Not Recovered/Not Resolved]
  - Hypoaesthesia [Recovering/Resolving]
  - Heart rate irregular [Recovered/Resolved]
  - Hypertension [Not Recovered/Not Resolved]
  - Hypersensitivity [Recovered/Resolved]
  - Drug dose omission [Recovered/Resolved]
  - Drug ineffective [Recovered/Resolved]
